FAERS Safety Report 5460861-4 (Version None)
Quarter: 2007Q3

REPORT INFORMATION
  Report Type: 
  Country: None (occurrence: None)
  Receive Date: 20070919
  Receipt Date: 20070906
  Transmission Date: 20080115
  Serious: Yes (Other)
  Sender: FDA-Public Use
  Company Number: GB-BOEHRINGER INGELHEIM PHARMACEUTICALS, INC.-2007-BP-21169YA

PATIENT
  Age: 77 Year
  Sex: Male

DRUGS (8)
  1. TAMSULOSIN HCL [Suspect]
     Indication: PROSTATIC DISORDER
     Route: 048
  2. ENALAPRIL MALEATE [Suspect]
     Indication: HYPERTENSION
     Route: 048
  3. PLAVIX [Suspect]
     Indication: ANTICOAGULANT THERAPY
     Route: 048
  4. SIMVASTATIN [Suspect]
     Indication: HYPERCHOLESTEROLAEMIA
     Route: 048
  5. FINASTERIDE [Concomitant]
     Indication: PROSTATIC DISORDER
  6. MAXITROL [Concomitant]
     Indication: CATARACT OPERATION
  7. PARACETAMOL [Concomitant]
  8. REPORTED IN NARRATIVE [Concomitant]

REACTIONS (2)
  - HALLUCINATION [None]
  - NIGHTMARE [None]
